FAERS Safety Report 7542052-6 (Version None)
Quarter: 2011Q2

REPORT INFORMATION
  Report Type: 
  Country: None (occurrence: None)
  Receive Date: 20110613
  Receipt Date: 20110606
  Transmission Date: 20111010
  Serious: Yes (Death, Other)
  Sender: FDA-Public Use
  Company Number: JP-ASTELLAS-2011JP003775

PATIENT
  Age: 84 Year
  Sex: Female

DRUGS (3)
  1. CEFTAZIDIME [Concomitant]
     Indication: LUNG INFECTION PSEUDOMONAL
     Route: 065
  2. PROGRAF [Suspect]
     Indication: RHEUMATOID ARTHRITIS
     Dosage: 0.5 MG, UNKNOWN/D
     Route: 065
  3. PREDNISOLONE [Concomitant]
     Indication: RHEUMATOID ARTHRITIS
     Dosage: 5 MG, UNKNOWN/D
     Route: 065

REACTIONS (2)
  - LUNG INFECTION PSEUDOMONAL [None]
  - PNEUMOCYSTIS JIROVECI PNEUMONIA [None]
